FAERS Safety Report 15805380 (Version 1)
Quarter: 2019Q1

REPORT INFORMATION
  Report Type: Spontaneous
  Country: US (occurrence: US)
  Receive Date: 20190110
  Receipt Date: 20190110
  Transmission Date: 20190417
  Serious: No
  Sender: FDA-Public Use
  Company Number: US-ELI_LILLY_AND_COMPANY-US201901003337

PATIENT
  Sex: Female

DRUGS (3)
  1. JANUVIA [Concomitant]
     Active Substance: SITAGLIPTIN PHOSPHATE
     Indication: PRODUCT USED FOR UNKNOWN INDICATION
  2. TRULICITY [Suspect]
     Active Substance: DULAGLUTIDE
     Indication: TYPE 2 DIABETES MELLITUS
     Dosage: 0.75 MG, UNKNOWN
     Route: 065
     Dates: start: 20181231
  3. MICRONASE [Concomitant]
     Active Substance: GLYBURIDE
     Indication: PRODUCT USED FOR UNKNOWN INDICATION

REACTIONS (4)
  - Vomiting [Not Recovered/Not Resolved]
  - Anxiety [Not Recovered/Not Resolved]
  - Palpitations [Not Recovered/Not Resolved]
  - Nausea [Not Recovered/Not Resolved]
